FAERS Safety Report 5742675-0 (Version None)
Quarter: 2008Q2

REPORT INFORMATION
  Report Type: 
  Country: None (occurrence: None)
  Receive Date: 20080519
  Receipt Date: 20080512
  Transmission Date: 20081010
  Serious: Yes (Other)
  Sender: FDA-Public Use
  Company Number: US-BAYER-200811865BCC

PATIENT
  Age: 54 Year
  Sex: Female
  Weight: 74 kg

DRUGS (4)
  1. ASPIRIN [Suspect]
     Indication: ISCHAEMIC HEART DISEASE PROPHYLAXIS
     Dosage: TOTAL DAILY DOSE: 325 MG  UNIT DOSE: 325 MG
     Route: 048
     Dates: start: 19950101
  2. HIGH BLOOD PRESSURE MEDICATIONS [Concomitant]
  3. HIGH CHOLESTEROL MEDICATIONS [Concomitant]
  4. DIURETIC [Concomitant]

REACTIONS (6)
  - BURNING SENSATION [None]
  - CARDIAC OPERATION [None]
  - CHEST DISCOMFORT [None]
  - CHEST PAIN [None]
  - GASTRITIS [None]
  - NAUSEA [None]
